FAERS Safety Report 8293867-0 (Version None)
Quarter: 2012Q2

REPORT INFORMATION
  Report Type: 
  Country: None (occurrence: None)
  Receive Date: 20120418
  Receipt Date: 20120412
  Transmission Date: 20120825
  Serious: Yes (Hospitalization)
  Sender: FDA-Public Use
  Company Number: US-AMGEN-USASP2011052970

PATIENT
  Age: 61 Year
  Sex: Male

DRUGS (18)
  1. AMLODIPINE [Concomitant]
     Dosage: 10 MG, QD
  2. DOCUSATE [Concomitant]
     Dosage: 100 MG, BID
  3. FENTANYL-100 [Concomitant]
     Dosage: 50 MUG, 2 TIMES/WK
  4. HYDROCHLOROTHIAZIDE [Concomitant]
     Dosage: 25 MG, QD
  5. LASIX [Concomitant]
     Dosage: 80 MG, QD
     Route: 048
  6. LISINOPRIL [Concomitant]
     Dosage: 10 MG, QD
     Route: 048
  7. METFORMIN HCL [Concomitant]
     Dosage: 500 MG, Q12H
  8. ADVAIR DISKUS 100/50 [Concomitant]
     Dosage: UNK UNK, BID
  9. CISPLATIN [Concomitant]
     Indication: TRANSITIONAL CELL CARCINOMA METASTATIC
     Dosage: UNK
     Dates: start: 20110929
  10. OXYGEN [Concomitant]
     Indication: CHRONIC OBSTRUCTIVE PULMONARY DISEASE
     Dosage: UNK
  11. MIRALAX                            /00754501/ [Concomitant]
     Dosage: 17 G, QD
  12. SINGULAIR [Concomitant]
     Dosage: 10 MG, QD
  13. CALCIUM WITH VITAMIN D             /00944201/ [Concomitant]
  14. OXYCODONE HCL [Concomitant]
     Indication: PAIN
     Dosage: 10 MG, Q3H
  15. XGEVA [Suspect]
     Indication: METASTASES TO BONE
     Dosage: 120 MG, Q4WK
     Route: 058
     Dates: start: 20110929
  16. GEMZAR [Concomitant]
     Indication: TRANSITIONAL CELL CARCINOMA METASTATIC
     Dosage: UNK
     Dates: start: 20110929, end: 20110929
  17. SYNTHROID [Concomitant]
     Dosage: 225 MG, QD
  18. MELOXICAM [Concomitant]
     Dosage: 7.5 MG, BID

REACTIONS (10)
  - LEFT VENTRICULAR HYPERTROPHY [None]
  - PARAESTHESIA [None]
  - HYPOCALCAEMIA [None]
  - HYPOPHAGIA [None]
  - SINUS BRADYCARDIA [None]
  - RENAL FAILURE ACUTE [None]
  - MUSCULAR WEAKNESS [None]
  - PARAESTHESIA ORAL [None]
  - HYPOTENSION [None]
  - BALANCE DISORDER [None]
